FAERS Safety Report 6469959-5 (Version None)
Quarter: 2009Q4

REPORT INFORMATION
  Report Type: 
  Country: None (occurrence: None)
  Receive Date: 20091203
  Receipt Date: 20071219
  Transmission Date: 20100525
  Serious: Yes (Death, Life-Threatening, Hospitalization, Other)
  Sender: FDA-Public Use
  Company Number: US-ELI_LILLY_AND_COMPANY-US200711005991

PATIENT
  Age: 47 Year
  Sex: Male
  Weight: 201.36 kg

DRUGS (6)
  1. BYETTA [Suspect]
     Indication: TYPE 2 DIABETES MELLITUS
     Dosage: 5 MG, 2/D
     Route: 058
     Dates: start: 20070613, end: 20070712
  2. BYETTA [Suspect]
     Dosage: 10 UG, 2/D
     Route: 058
     Dates: start: 20070713
  3. LISINOPRIL [Concomitant]
     Dosage: UNK, UNKNOWN
  4. METFORMIN HCL [Concomitant]
     Dosage: UNK, UNKNOWN
  5. VYTORIN [Concomitant]
     Dosage: UNK, UNKNOWN
  6. CLARITIN [Concomitant]
     Dosage: UNK, UNKNOWN

REACTIONS (12)
  - ARTERIOSCLEROSIS CORONARY ARTERY [None]
  - ASCITES [None]
  - BLOOD GLUCOSE INCREASED [None]
  - CHOLELITHIASIS [None]
  - DECREASED APPETITE [None]
  - GASTRITIS HAEMORRHAGIC [None]
  - HEPATIC STEATOSIS [None]
  - HYPERHIDROSIS [None]
  - PANCREATITIS HAEMORRHAGIC [None]
  - PULMONARY OEDEMA [None]
  - PULSE ABSENT [None]
  - SYNCOPE [None]
